FAERS Safety Report 7412052-5 (Version None)
Quarter: 2011Q2

REPORT INFORMATION
  Report Type: 
  Country: None (occurrence: None)
  Receive Date: 20110413
  Receipt Date: 20110411
  Transmission Date: 20111010
  Serious: Yes (Hospitalization)
  Sender: FDA-Public Use
  Company Number: US-BRISTOL-MYERS SQUIBB COMPANY-15410459

PATIENT
  Age: 63 Year
  Sex: Male

DRUGS (12)
  1. ONGLYZA [Suspect]
     Indication: DIABETES MELLITUS
     Dosage: TEMP DISCONTINUED ON 18NOV2010
     Dates: start: 20101014
  2. PROZAC [Concomitant]
     Indication: DEPRESSION
  3. CRESTOR [Suspect]
  4. GLIMEPIRIDE [Concomitant]
  5. TRICOR [Concomitant]
  6. FLOVENT [Concomitant]
     Dosage: METERED-DOSE INHALER
  7. METFORMIN [Concomitant]
  8. ENALAPRIL MALEATE [Suspect]
  9. METOPROLOL TARTRATE [Concomitant]
  10. FELODIPINE [Concomitant]
  11. SALMETEROL [Concomitant]
  12. ASPIRIN [Concomitant]

REACTIONS (1)
  - PANCREATITIS [None]
